FAERS Safety Report 5241302-9 (Version None)
Quarter: 2007Q1

REPORT INFORMATION
  Report Type: 
  Country: None (occurrence: None)
  Receive Date: 20070220
  Receipt Date: 20070211
  Transmission Date: 20070707
  Serious: Yes (Hospitalization, Other)
  Sender: FDA-Public Use
  Company Number: IL-JNJFOC-20070202867

PATIENT
  Sex: Female

DRUGS (1)
  1. RISPERDAL [Suspect]
     Indication: HALLUCINATION
     Route: 048

REACTIONS (5)
  - APHASIA [None]
  - ASTHENIA [None]
  - BEDRIDDEN [None]
  - COMMUNICATION DISORDER [None]
  - DIZZINESS [None]
